FAERS Safety Report 23022247 (Version 2)
Quarter: 2023Q4

REPORT INFORMATION
  Report Type: Report from Study
  Country: US (occurrence: US)
  Receive Date: 20231003
  Receipt Date: 20231006
  Transmission Date: 20240110
  Serious: Yes (Other)
  Sender: FDA-Public Use
  Company Number: US-JNJFOC-20230957142

PATIENT
  Age: 43 Year
  Sex: Female

DRUGS (4)
  1. SPRAVATO [Suspect]
     Active Substance: ESKETAMINE
     Indication: Depression
     Dosage: 56 MG, 1 DOSE
     Dates: start: 20230612, end: 20230612
  2. SPRAVATO [Suspect]
     Active Substance: ESKETAMINE
     Dosage: 84 MG, 20 DOSES
     Dates: start: 20230614, end: 20230915
  3. KETAMINE [Concomitant]
     Active Substance: KETAMINE
  4. KETAMINE [Concomitant]
     Active Substance: KETAMINE

REACTIONS (1)
  - Drug abuse [Unknown]
